FAERS Safety Report 7818929-0 (Version None)
Quarter: 2011Q4

REPORT INFORMATION
  Report Type: 
  Country: None (occurrence: None)
  Receive Date: 20111017
  Receipt Date: 20111017
  Transmission Date: 20120403
  Serious: No
  Sender: FDA-Public Use
  Company Number: None

PATIENT
  Sex: Male

DRUGS (1)
  1. ENBREL [Suspect]
     Indication: PSORIASIS
     Dosage: 50 MG QWEEK SQ
     Route: 058
     Dates: start: 20110512, end: 20111012

REACTIONS (3)
  - PRURITUS [None]
  - DIZZINESS [None]
  - PAIN IN EXTREMITY [None]
